FAERS Safety Report 10331931 (Version 1)
Quarter: 2014Q3

REPORT INFORMATION
  Report Type: Report from Study
  Country: CA (occurrence: CA)
  Receive Date: 20140722
  Receipt Date: 20140722
  Transmission Date: 20150326
  Serious: Yes (Hospitalization)
  Sender: FDA-Public Use
  Company Number: CA-JNJFOC-20140711177

PATIENT
  Sex: Male
  Weight: 71 kg

DRUGS (1)
  1. REMICADE [Suspect]
     Active Substance: INFLIXIMAB
     Indication: CROHN^S DISEASE
     Route: 042
     Dates: start: 201203

REACTIONS (3)
  - Postoperative abscess [Unknown]
  - Ileostomy [Unknown]
  - Colectomy [Unknown]

NARRATIVE: CASE EVENT DATE: 2014
